FAERS Safety Report 22221938 (Version 3)
Quarter: 2023Q2

REPORT INFORMATION
  Report Type: Report from Study
  Country: US (occurrence: US)
  Receive Date: 20230418
  Receipt Date: 20230618
  Transmission Date: 20230721
  Serious: Yes (Disabling, Other)
  Sender: FDA-Public Use
  Company Number: US-ABBVIE-4720753

PATIENT
  Age: 72 Year
  Sex: Male

DRUGS (2)
  1. HUMIRA [Suspect]
     Active Substance: ADALIMUMAB
     Indication: Psoriasis
     Route: 058
  2. HUMIRA [Suspect]
     Active Substance: ADALIMUMAB
     Route: 058

REACTIONS (10)
  - Clavicle fracture [Recovering/Resolving]
  - Blood iron decreased [Not Recovered/Not Resolved]
  - Fall [Recovering/Resolving]
  - Allergic sinusitis [Recovering/Resolving]
  - Dysphonia [Not Recovered/Not Resolved]
  - Device physical property issue [Recovering/Resolving]
  - Increased tendency to bruise [Recovering/Resolving]
  - Anxiety [Unknown]
  - Fatigue [Not Recovered/Not Resolved]
  - Rhinorrhoea [Unknown]

NARRATIVE: CASE EVENT DATE: 20230330
